FAERS Safety Report 7035212-4 (Version None)
Quarter: 2010Q4

REPORT INFORMATION
  Report Type: 
  Country: None (occurrence: None)
  Receive Date: 20101008
  Receipt Date: 20100419
  Transmission Date: 20110411
  Serious: No
  Sender: FDA-Public Use
  Company Number: US-BAYER-201021128BCC

PATIENT
  Age: 37 Year
  Sex: Female

DRUGS (1)
  1. ALEVE [Suspect]
     Indication: PRODUCT USED FOR UNKNOWN INDICATION
     Dosage: AS USED: 880 MG  UNIT DOSE: 220 MG
     Route: 048

REACTIONS (1)
  - NO ADVERSE EVENT [None]
